FAERS Safety Report 9659023 (Version 1)
Quarter: 2013Q4

REPORT INFORMATION
  Report Type: Spontaneous
  Country: US (occurrence: US)
  Receive Date: 20131031
  Receipt Date: 20131031
  Transmission Date: 20140711
  Serious: Yes (Hospitalization)
  Sender: FDA-Public Use
  Company Number: US-BIOGENIDEC-2013BI103375

PATIENT
  Age: 41 Year
  Sex: Female

DRUGS (3)
  1. AVONEX [Suspect]
     Indication: MULTIPLE SCLEROSIS
     Route: 030
     Dates: start: 19990201
  2. AVONEX [Suspect]
     Indication: MULTIPLE SCLEROSIS
     Route: 030
     Dates: end: 2009
  3. HYPERAL [Concomitant]
     Indication: NUTRITIONAL SUPPLEMENTATION
     Dates: start: 2000

REACTIONS (8)
  - Gastrointestinal disorder [Recovered/Resolved]
  - Oophorectomy [Recovered/Resolved]
  - Pyrexia [Recovered/Resolved]
  - Vomiting [Recovered/Resolved]
  - Chills [Recovered/Resolved]
  - Vein disorder [Unknown]
  - Medical device change [Unknown]
  - Multiple sclerosis relapse [Recovered/Resolved]
